FAERS Safety Report 19253735 (Version 2)
Quarter: 2022Q1

REPORT INFORMATION
  Report Type: Report from Study
  Country: US (occurrence: US)
  Receive Date: 20210513
  Receipt Date: 20220208
  Transmission Date: 20220423
  Serious: Yes (Other)
  Sender: FDA-Public Use
  Company Number: US-TAKEDA-US202003535

PATIENT
  Sex: Female

DRUGS (2)
  1. HUMAN IMMUNOGLOBULIN G [Suspect]
     Active Substance: HUMAN IMMUNOGLOBULIN G
     Indication: Selective IgG subclass deficiency
     Dosage: UNK
     Route: 042
  2. COVID-19 VACCINE NOS [Suspect]
     Active Substance: COVID-19 VACCINE NOS
     Indication: Product used for unknown indication
     Route: 065

REACTIONS (10)
  - Pericarditis [Unknown]
  - Multimorbidity [Unknown]
  - Unevaluable event [Unknown]
  - Nasopharyngitis [Unknown]
  - Bronchitis [Unknown]
  - Corneal abrasion [Unknown]
  - Tooth fracture [Unknown]
  - COVID-19 immunisation [Unknown]
  - Illness [Unknown]
  - Insurance issue [Unknown]
